FAERS Safety Report 11931235 (Version 1)
Quarter: 2016Q1

REPORT INFORMATION
  Report Type: Spontaneous
  Country: IT (occurrence: IT)
  Receive Date: 20160120
  Receipt Date: 20160120
  Transmission Date: 20160526
  Serious: Yes (Hospitalization)
  Sender: FDA-Public Use
  Company Number: IT-BAYER-2016-006314

PATIENT
  Age: 63 Year
  Sex: Male

DRUGS (5)
  1. NIMESULIDE [Suspect]
     Active Substance: NIMESULIDE
     Indication: ARTHRALGIA
     Dosage: UNK UNK, QD
     Route: 048
  2. CIPROFLOXACIN. [Suspect]
     Active Substance: CIPROFLOXACIN
     Dosage: UNK UNK, QD
     Route: 048
  3. BIFRIZIDE [Suspect]
     Active Substance: HYDROCHLOROTHIAZIDE
     Indication: HYPERTENSION
     Dosage: DAILY DOSE 1 DF
     Route: 048
  4. CLARITHROMYCIN. [Suspect]
     Active Substance: CLARITHROMYCIN
     Dosage: UNK UNK, QD
     Route: 048
  5. IBUPROFEN. [Suspect]
     Active Substance: IBUPROFEN
     Indication: ARTHRALGIA
     Dosage: UNK UNK, QD
     Route: 048

REACTIONS (1)
  - Nephropathy [Unknown]

NARRATIVE: CASE EVENT DATE: 20160104
